FAERS Safety Report 6584864-1 (Version None)
Quarter: 2010Q1

REPORT INFORMATION
  Report Type: 
  Country: None (occurrence: None)
  Receive Date: 20100217
  Receipt Date: 20100208
  Transmission Date: 20100710
  Serious: Yes (Hospitalization)
  Sender: FDA-Public Use
  Company Number: AU-NOVOPROD-304080

PATIENT
  Sex: Female

DRUGS (2)
  1. NOVOMIX 30 [Suspect]
     Indication: TYPE 2 DIABETES MELLITUS
     Dosage: 90 IU, QD 50U MORNING + 40 U EVENING
     Route: 058
  2. NOVOMIX 30 [Suspect]
     Dosage: 80 IU, QD 50U MORNING+ 30U EVENING
     Route: 058

REACTIONS (5)
  - CARDIAC DISORDER [None]
  - DECUBITUS ULCER [None]
  - FALL [None]
  - HYPOGLYCAEMIA [None]
  - UPPER LIMB FRACTURE [None]
